FAERS Safety Report 15157780 (Version 2)
Quarter: 2018Q3

REPORT INFORMATION
  Report Type: Spontaneous
  Country: US (occurrence: US)
  Receive Date: 20180718
  Receipt Date: 20180919
  Transmission Date: 20181010
  Serious: Yes (Other)
  Sender: FDA-Public Use
  Company Number: US-PFIZER INC-2018287248

PATIENT
  Age: 45 Year
  Sex: Female
  Weight: 77.98 kg

DRUGS (1)
  1. CHANTIX [Suspect]
     Active Substance: VARENICLINE TARTRATE
     Indication: SMOKING CESSATION THERAPY
     Dosage: UNK

REACTIONS (4)
  - Suicidal ideation [Unknown]
  - Nightmare [Unknown]
  - Nausea [Unknown]
  - Abnormal dreams [Unknown]
